FAERS Safety Report 19109817 (Version 1)
Quarter: 2021Q2

REPORT INFORMATION
  Report Type: Report from Study
  Country: US (occurrence: US)
  Receive Date: 20210409
  Receipt Date: 20210409
  Transmission Date: 20210717
  Serious: No
  Sender: FDA-Public Use
  Company Number: US-ACADIA PHARMACEUTICALS INC.-ACA-2021-PIM-001043

PATIENT
  Age: 70 Year
  Sex: Male

DRUGS (9)
  1. TRAZODONE [Concomitant]
     Active Substance: TRAZODONE HYDROCHLORIDE
     Dosage: 12.5
  2. PARCOPA [Concomitant]
     Active Substance: CARBIDOPA\LEVODOPA
     Dosage: AS NEEDED
  3. LEXAPRO [Concomitant]
     Active Substance: ESCITALOPRAM OXALATE
     Dosage: 10
  4. NUPLAZID [Suspect]
     Active Substance: PIMAVANSERIN TARTRATE
     Indication: PARKINSON^S DISEASE
     Dosage: 10 MILLIGRAM, QD
     Route: 048
     Dates: start: 20200606
  5. NUPLAZID [Suspect]
     Active Substance: PIMAVANSERIN TARTRATE
     Dosage: 37.5 MG
     Dates: end: 20210209
  6. MELATONIN [Concomitant]
     Active Substance: MELATONIN
     Dosage: 5
  7. RYTARY [Concomitant]
     Active Substance: CARBIDOPA\LEVODOPA
     Dosage: 195/48.75
  8. DONEPEZIL. [Concomitant]
     Active Substance: DONEPEZIL
     Dosage: 10
  9. NAMENDA [Concomitant]
     Active Substance: MEMANTINE HYDROCHLORIDE
     Dosage: 20

REACTIONS (3)
  - Prescribed underdose [Recovered/Resolved]
  - Prescribed overdose [Recovered/Resolved]
  - Drug ineffective [Unknown]

NARRATIVE: CASE EVENT DATE: 20200606
